FAERS Safety Report 8810956 (Version 2)
Quarter: 2013Q2

REPORT INFORMATION
  Report Type: Spontaneous
  Country: BR (occurrence: BR)
  Receive Date: 20120927
  Receipt Date: 20130416
  Transmission Date: 20140414
  Serious: Yes (Hospitalization)
  Sender: FDA-Public Use
  Company Number: BR-AMGEN-BRASP2012009138

PATIENT
  Age: 54 Year
  Sex: Female
  Weight: 71 kg

DRUGS (10)
  1. ENBREL [Suspect]
     Indication: RHEUMATOID ARTHRITIS
     Dosage: 50 MG, ONCE WEEKLY
     Dates: start: 20110105
  2. ENBREL [Suspect]
     Dosage: 50 MG, WEEKLY (SOLUTION FOR INJECTION IN PRE FILLED PEN)
     Route: 058
     Dates: start: 201111
  3. ENBREL [Suspect]
     Dosage: 50 MG, WEEKLY ( POWDER AND SOLVENTS FOR SOLUTION FOR INJECTION)
     Route: 058
     Dates: start: 20110105, end: 201111
  4. PREDNISONE [Concomitant]
     Indication: ARTHRITIS
     Dosage: 5 MG, ONCE A DAY
  5. PREDNISONE [Concomitant]
     Indication: RHEUMATOID ARTHRITIS
     Dosage: UNK
  6. CALCIUM D                          /01272001/ [Concomitant]
     Indication: OSTEOPOROSIS
     Dosage: UNK
  7. IBUPROFEN [Concomitant]
     Indication: PAIN
     Dosage: UNK
  8. FOLIC ACID [Concomitant]
     Indication: RHEUMATOID ARTHRITIS
     Dosage: 5 MG, ONCE A WEEK
  9. CALCIUM [Concomitant]
     Indication: OSTEOPOROSIS
     Dosage: 600 MG, TWICE A DAY
  10. METHOTREXATE [Concomitant]
     Dosage: UNK

REACTIONS (3)
  - Hip deformity [Recovering/Resolving]
  - Injection site pain [Unknown]
  - Alopecia [Unknown]
